FAERS Safety Report 17326330 (Version 1)
Quarter: 2020Q1

REPORT INFORMATION
  Report Type: Spontaneous
  Country: FR (occurrence: FR)
  Receive Date: 20200127
  Receipt Date: 20200127
  Transmission Date: 20200409
  Serious: Yes (Hospitalization)
  Sender: FDA-Public Use
  Company Number: FR-MYLANLABS-2020M1008269

PATIENT
  Age: 85 Year
  Sex: Female
  Weight: 78 kg

DRUGS (6)
  1. VIDAZA [Concomitant]
     Active Substance: AZACITIDINE
     Indication: MYELODYSPLASTIC SYNDROME
     Dosage: UNK
     Dates: end: 20191007
  2. CORDARONE [Concomitant]
     Active Substance: AMIODARONE HYDROCHLORIDE
     Dosage: UNK
  3. ELIQUIS [Concomitant]
     Active Substance: APIXABAN
     Dosage: UNK
  4. CIPROFLOXACIN. [Suspect]
     Active Substance: CIPROFLOXACIN
     Indication: ERYSIPELAS
     Dosage: 1500 MILLIGRAM, QD
     Route: 048
     Dates: start: 20191022, end: 20191102
  5. LASILIX                            /00032601/ [Concomitant]
     Active Substance: FUROSEMIDE
     Dosage: UNK
  6. ZYVOXID [Suspect]
     Active Substance: LINEZOLID
     Indication: ERYSIPELAS
     Dosage: 600 MILLIGRAM, QD
     Route: 048
     Dates: start: 20191022, end: 20191102

REACTIONS (2)
  - Condition aggravated [Not Recovered/Not Resolved]
  - Anaemia [Not Recovered/Not Resolved]

NARRATIVE: CASE EVENT DATE: 20191030
